FAERS Safety Report 11361873 (Version 1)
Quarter: 2015Q3

REPORT INFORMATION
  Report Type: Spontaneous
  Country: NL (occurrence: NL)
  Receive Date: 20150810
  Receipt Date: 20150810
  Transmission Date: 20151125
  Serious: Yes (Hospitalization)
  Sender: FDA-Public Use
  Company Number: NL-TEVA-582751ISR

PATIENT
  Age: 70 Year
  Sex: Female

DRUGS (2)
  1. METHOTREXATE [Suspect]
     Active Substance: METHOTREXATE
     Indication: ARTHRITIS
     Dosage: DOSAGE NOT KNOWN
     Route: 048
  2. FOLIUMZUUR (FOLIC ACID) [Concomitant]
     Dosage: DOSAGE NOT KNOWN
     Route: 048

REACTIONS (3)
  - Haematoma [Unknown]
  - Stomatitis [Recovering/Resolving]
  - Pancytopenia [Recovering/Resolving]

NARRATIVE: CASE EVENT DATE: 201506
